FAERS Safety Report 10255098 (Version 1)
Quarter: 2014Q2

REPORT INFORMATION
  Report Type: Spontaneous
  Country: US (occurrence: US)
  Receive Date: 20140624
  Receipt Date: 20140624
  Transmission Date: 20141212
  Serious: Yes (Other)
  Sender: FDA-Public Use
  Company Number: US-PFIZER INC-2014169371

PATIENT
  Age: 44 Year
  Sex: Female
  Weight: 58.96 kg

DRUGS (3)
  1. PREMPHASE [Suspect]
     Dosage: UNK
     Route: 048
  2. PROPRANOLOL [Concomitant]
     Indication: HYPERTENSION
     Dosage: UNK
  3. CYMBALTA [Concomitant]
     Indication: DEPRESSION
     Dosage: UNK

REACTIONS (5)
  - Colon cancer [Unknown]
  - Arnold-Chiari malformation [Unknown]
  - Convulsion [Unknown]
  - Blood sodium decreased [Unknown]
  - Hypotension [Unknown]
